FAERS Safety Report 8177404-7 (Version None)
Quarter: 2012Q1

REPORT INFORMATION
  Report Type: 
  Country: None (occurrence: None)
  Receive Date: 20120301
  Receipt Date: 20120223
  Transmission Date: 20120608
  Serious: Yes (Hospitalization)
  Sender: FDA-Public Use
  Company Number: US-BAYER-2011-022557

PATIENT
  Age: 42 Year
  Sex: Female
  Weight: 113 kg

DRUGS (33)
  1. MAXZIDE [Concomitant]
     Indication: FLUID RETENTION
  2. ZOLOFT [Concomitant]
     Indication: ANTIDEPRESSANT THERAPY
  3. PROPOXYPHENE NAPSYLATE W/PARACETAMOL [Concomitant]
     Dosage: UNK
     Route: 048
     Dates: start: 20080205, end: 20080318
  4. FLURBIPROFEN [Concomitant]
     Dosage: 100 MG, UNK
     Route: 048
     Dates: start: 20080218
  5. PRILOSEC [Concomitant]
     Indication: GASTROOESOPHAGEAL REFLUX DISEASE
  6. SYNTHROID [Concomitant]
     Indication: HYPOTHYROIDISM
     Dosage: 200 UNK, UNK
     Dates: start: 20080118, end: 20080310
  7. PROMETHAZINE [Concomitant]
     Dosage: 25 MG, UNK
     Route: 048
  8. PHENERGAN [Concomitant]
  9. PROPRANOLOL [Concomitant]
     Dosage: 60 MG, UNK
     Dates: start: 20080502
  10. CEPHALEXIN [Concomitant]
     Dosage: 500 MG, UNK
     Route: 048
     Dates: start: 20080506
  11. PROVIGIL [Concomitant]
     Dosage: 200 MG, UNK
     Route: 048
     Dates: start: 20080307
  12. INDERAL [Concomitant]
     Indication: HEADACHE
  13. SYNTHROID [Concomitant]
     Dosage: UNK
     Dates: start: 20080505
  14. ASPIRIN [Concomitant]
     Indication: THROMBOSIS
  15. LYRICA [Concomitant]
     Dosage: 50 MG, UNK
     Route: 048
     Dates: start: 20080304, end: 20080505
  16. TRIAMTERENE AND HYDROCHLOROTHIAZIDE [Concomitant]
     Dosage: UNK
     Route: 048
     Dates: start: 20080201
  17. FENOFIBRATE [Concomitant]
     Indication: BLOOD CHOLESTEROL ABNORMAL
  18. BUPROPION HCL [Concomitant]
     Dosage: 150 MG, UNK
     Route: 048
  19. TIZANIDINE HYDROCHLORIDE [Concomitant]
     Dosage: 4 MG, UNK
     Dates: start: 20080324, end: 20080505
  20. DIOVAN [Concomitant]
  21. AMBIEN [Concomitant]
     Indication: SLEEP DISORDER THERAPY
     Dosage: 12.5 MG, UNK
     Dates: start: 20080317, end: 20080414
  22. FLUOXETINE [Concomitant]
     Dosage: 10 MG, UNK
     Route: 048
  23. MAXZIDE [Concomitant]
     Indication: BLOOD PRESSURE MANAGEMENT
  24. INDERAL [Concomitant]
     Indication: BLOOD PRESSURE MANAGEMENT
  25. DIODAN [Concomitant]
     Indication: BLOOD PRESSURE MANAGEMENT
  26. HYDROCODONE BITARTRATE AND ACETAMINOPHEN [Concomitant]
     Dosage: UNK
     Route: 048
     Dates: start: 20080505
  27. UNCODEABLE ^UNCLASSIFIABLE^ [Concomitant]
     Dosage: 4 MG, UNK
     Route: 048
     Dates: start: 20080205
  28. YAZ [Suspect]
     Indication: PREMENSTRUAL SYNDROME
     Dosage: UNK
     Route: 048
     Dates: start: 20071013, end: 20080507
  29. WELLBUTRIN [Concomitant]
     Indication: ANTIDEPRESSANT THERAPY
  30. ABILIFY [Concomitant]
     Indication: ANTIDEPRESSANT THERAPY
  31. BUPROPION HCL [Concomitant]
     Dosage: 300 MG, UNK
     Route: 048
  32. OMEPRAZOLE [Concomitant]
     Dosage: 20 MG, UNK
     Route: 048
     Dates: start: 20080225, end: 20080425
  33. OXYCODONE HCL AND ACETAMINOPHEN [Concomitant]
     Dosage: UNK
     Route: 048
     Dates: start: 20080506

REACTIONS (5)
  - DEEP VEIN THROMBOSIS [None]
  - THROMBOPHLEBITIS SUPERFICIAL [None]
  - INJURY [None]
  - PAIN IN EXTREMITY [None]
  - OEDEMA PERIPHERAL [None]
